FAERS Safety Report 5612093-4 (Version None)
Quarter: 2008Q1

REPORT INFORMATION
  Report Type: 
  Country: None (occurrence: None)
  Receive Date: 20080204
  Receipt Date: 20080131
  Transmission Date: 20080703
  Serious: Yes (Death, Other)
  Sender: FDA-Public Use
  Company Number: PHBS2008BR01577

PATIENT
  Sex: Male

DRUGS (2)
  1. VITAMIN B COMPLEX CAP [Concomitant]
  2. EXELON [Suspect]
     Indication: DEMENTIA ALZHEIMER'S TYPE
     Dosage: 6 MG, BID
     Route: 048

REACTIONS (4)
  - ABASIA [None]
  - DEATH [None]
  - HYPERTENSION [None]
  - WEIGHT DECREASED [None]
